FAERS Safety Report 15523279 (Version 1)
Quarter: 2018Q4

REPORT INFORMATION
  Report Type: Spontaneous
  Country: US (occurrence: US)
  Receive Date: 20181018
  Receipt Date: 20181018
  Transmission Date: 20190205
  Serious: Yes (Other)
  Sender: FDA-Public Use
  Company Number: US-UCBSA-2018046094

PATIENT
  Sex: Male

DRUGS (1)
  1. KEPPRA [Suspect]
     Active Substance: LEVETIRACETAM
     Indication: SEIZURE
     Dosage: UNREPORTED LOADING DOSE
     Dates: start: 201807, end: 2018

REACTIONS (1)
  - Electroencephalogram abnormal [Unknown]

NARRATIVE: CASE EVENT DATE: 2018
